FAERS Safety Report 19408042 (Version 3)
Quarter: 2021Q3

REPORT INFORMATION
  Report Type: Spontaneous
  Country: US (occurrence: US)
  Receive Date: 20210611
  Receipt Date: 20210727
  Transmission Date: 20211014
  Serious: No
  Sender: FDA-Public Use
  Company Number: US-LUPIN PHARMACEUTICALS INC.-2021-09111

PATIENT
  Weight: 146.96 kg

DRUGS (2)
  1. SILDENAFIL TABLETS USP, 100 MG [Suspect]
     Active Substance: SILDENAFIL
     Indication: PRODUCT USED FOR UNKNOWN INDICATION
     Dosage: 100 MILLIGRAM
     Route: 048
  2. SILDENAFIL TABLETS USP, 100 MG [Suspect]
     Active Substance: SILDENAFIL
     Dosage: 100 MILLIGRAM (1 TABLET BY MOUTH 1 HOUR BEFORE SEXUAL ACTIVITY)
     Route: 048
     Dates: start: 202105

REACTIONS (2)
  - Product substitution issue [Unknown]
  - Drug ineffective [Unknown]
